FAERS Safety Report 5327523-5 (Version None)
Quarter: 2007Q2

REPORT INFORMATION
  Report Type: 
  Country: None (occurrence: None)
  Receive Date: 20070517
  Receipt Date: 20070129
  Transmission Date: 20071010
  Serious: Yes (Hospitalization)
  Sender: FDA-Public Use
  Company Number: US-JNJFOC-20070103747

PATIENT
  Age: 6 Month
  Sex: Male

DRUGS (5)
  1. TRAMADOL HCL [Suspect]
     Indication: ACCIDENTAL EXPOSURE
     Route: 048
  2. SULFONYLUREA [Suspect]
     Indication: ACCIDENTAL EXPOSURE
     Route: 048
  3. CYCLOBENZAPRINE HCL [Suspect]
     Indication: ACCIDENTAL EXPOSURE
     Route: 048
  4. BIGUANIDE [Suspect]
     Indication: ACCIDENTAL EXPOSURE
     Route: 048
  5. ACE INHIBITOR [Suspect]
     Indication: ACCIDENTAL EXPOSURE
     Route: 048

REACTIONS (2)
  - ACCIDENTAL DRUG INTAKE BY CHILD [None]
  - LETHARGY [None]
